FAERS Safety Report 4275111-4 (Version None)
Quarter: 2004Q1

REPORT INFORMATION
  Report Type: 
  Country: None (occurrence: None)
  Receive Date: 20040116
  Receipt Date: 20040106
  Transmission Date: 20041129
  Serious: Yes (Hospitalization)
  Sender: FDA-Public Use
  Company Number: 2003027646

PATIENT
  Age: 47 Year
  Sex: Male
  Weight: 102 kg

DRUGS (1)
  1. TAHOR (ATORVASTATIN) [Suspect]
     Indication: HYPERCHOLESTEROLAEMIA
     Dosage: 40 MG (DAILY),
     Dates: start: 20011001, end: 20020101

REACTIONS (15)
  - ANTINUCLEAR ANTIBODY POSITIVE [None]
  - BLOOD CHOLESTEROL INCREASED [None]
  - BLOOD IRON INCREASED [None]
  - CHOLESTASIS [None]
  - CYTOLYTIC HEPATITIS [None]
  - DECUBITUS ULCER [None]
  - DERMATOMYOSITIS [None]
  - DIABETES MELLITUS NON-INSULIN-DEPENDENT [None]
  - DRUG TOLERANCE DECREASED [None]
  - HAEMOCHROMATOSIS [None]
  - HYPERTENSION [None]
  - MICROANGIOPATHY [None]
  - MYALGIA [None]
  - PROTEIN URINE PRESENT [None]
  - SERUM FERRITIN INCREASED [None]
